FAERS Safety Report 6671637-4 (Version None)
Quarter: 2010Q2

REPORT INFORMATION
  Report Type: 
  Country: None (occurrence: None)
  Receive Date: 20100406
  Receipt Date: 20100406
  Transmission Date: 20101027
  Serious: Yes (Other)
  Sender: FDA-Public Use
  Company Number: None

PATIENT
  Sex: Female
  Weight: 34.9 kg

DRUGS (1)
  1. NUTROPIN AQ [Suspect]
     Indication: BODY HEIGHT BELOW NORMAL
     Dosage: 1.3 MG DAILY SC
     Route: 058
     Dates: start: 20080401, end: 20090501

REACTIONS (2)
  - BREAST HYPERPLASIA [None]
  - BREAST MASS [None]
